FAERS Safety Report 5824673-1 (Version None)
Quarter: 2008Q3

REPORT INFORMATION
  Report Type: 
  Country: None (occurrence: None)
  Receive Date: 20080721
  Receipt Date: 20080709
  Transmission Date: 20090109
  Serious: Yes (Death, Hospitalization)
  Sender: FDA-Public Use
  Company Number: 10588

PATIENT
  Age: 21 Month
  Sex: Male

DRUGS (4)
  1. VINCRISTINE [Suspect]
     Indication: ACUTE LYMPHOCYTIC LEUKAEMIA
     Dosage: 1.5 MG/M2 WEEKLY
  2. DEXAMETHASONE [Suspect]
     Indication: ACUTE LYMPHOCYTIC LEUKAEMIA
     Dosage: 10 MG/M2 PO
     Route: 048
  3. LIPOSOMAL DOXORUBICIN [Suspect]
     Indication: ACUTE LYMPHOCYTIC LEUKAEMIA
     Dosage: 25 MG/M2 WEEKLY
  4. ASPARAGINASE [Suspect]
     Indication: ACUTE LYMPHOCYTIC LEUKAEMIA
     Dosage: 1000 IU/M2 ONCE

REACTIONS (7)
  - ADENOVIRAL HEPATITIS [None]
  - ADENOVIRUS INFECTION [None]
  - HEPATIC ENCEPHALOPATHY [None]
  - HERPES SIMPLEX [None]
  - PSEUDOMONAS INFECTION [None]
  - RENAL FAILURE [None]
  - STAPHYLOCOCCAL INFECTION [None]
